FAERS Safety Report 9646451 (Version 1)
Quarter: 2013Q4

REPORT INFORMATION
  Report Type: Spontaneous
  Country: AU (occurrence: None)
  Receive Date: 20131024
  Receipt Date: 20131024
  Transmission Date: 20140711
  Serious: Yes (Hospitalization)
  Sender: FDA-Public Use
  Company Number: FK201304630

PATIENT
  Sex: Female

DRUGS (3)
  1. VALPROATE (MANUFACTURER UNKNOWN) (VALOPROATE SODIUM) (VALOPROATE SODIUM) [Suspect]
     Indication: CONVULSION
  2. DOXEPIN (DOXEPIN) (DOXEPIN) [Suspect]
  3. LAMOTRIGINE (LAMOTRIGINE) [Concomitant]

REACTIONS (4)
  - Complex partial seizures [None]
  - Grand mal convulsion [None]
  - Lip injury [None]
  - Urinary incontinence [None]
